FAERS Safety Report 12215747 (Version 1)
Quarter: 2016Q1

REPORT INFORMATION
  Report Type: Spontaneous
  Country: US (occurrence: US)
  Receive Date: 20160328
  Receipt Date: 20160328
  Transmission Date: 20160526
  Serious: No
  Sender: FDA-Public Use
  Company Number: US-009507513-1603USA010593

PATIENT
  Sex: Male

DRUGS (2)
  1. PIOGLITAZONE. [Suspect]
     Active Substance: PIOGLITAZONE
  2. JANUVIA [Suspect]
     Active Substance: SITAGLIPTIN PHOSPHATE
     Dosage: UNKNOWN
     Route: 048

REACTIONS (1)
  - Drug ineffective [Unknown]
